FAERS Safety Report 22138232 (Version 1)
Quarter: 2023Q1

REPORT INFORMATION
  Report Type: Spontaneous
  Country: GB (occurrence: GB)
  Receive Date: 20230325
  Receipt Date: 20230325
  Transmission Date: 20230418
  Serious: Yes (Other)
  Sender: FDA-Public Use
  Company Number: None

PATIENT
  Age: 68 Year
  Sex: Male
  Weight: 73 kg

DRUGS (13)
  1. SODIUM CHLORIDE [Suspect]
     Active Substance: SODIUM CHLORIDE
     Indication: Ill-defined disorder
     Dosage: 5 ML
     Route: 065
     Dates: start: 20230120, end: 20230122
  2. LEVOFLOXACIN [Suspect]
     Active Substance: LEVOFLOXACIN
     Indication: Ill-defined disorder
     Dosage: 250 MG ONCE A DAY (DOSAGE TEXT: 1 DAILY FOR 5 DAYS)
     Route: 065
     Dates: start: 20230122, end: 20230205
  3. LEVOFLOXACIN [Suspect]
     Active Substance: LEVOFLOXACIN
     Dosage: UNK
     Route: 065
     Dates: start: 20230206
  4. ACYCLOVIR [Concomitant]
     Active Substance: ACYCLOVIR
     Indication: Ill-defined disorder
     Dosage: 1 DF TWO TIMES A DAY 1 TABLET - (DOSAGE TEXT: ADMIN TIMES: 08:00, 20:00)
     Route: 048
     Dates: start: 20230122, end: 20230205
  5. ALLOPURINOL [Concomitant]
     Active Substance: ALLOPURINOL
     Indication: Ill-defined disorder
     Dosage: 1 DF ONCE A DAY 1 TABLET - (DOSAGE TEXT: ADMIN TIMES: 08:00)
     Route: 048
     Dates: start: 20230122, end: 20230205
  6. AZTREONAMUM [Concomitant]
     Indication: Ill-defined disorder
     Dosage: 1.5 G
     Route: 065
     Dates: start: 20230121, end: 20230122
  7. CHLORPHENIRAMINE MALEATE [Concomitant]
     Active Substance: CHLORPHENIRAMINE MALEATE
     Indication: Ill-defined disorder
     Dosage: 1 DF, THREE TIMES A DAY 1 TABLET - (DOSAGE TEXT: ADMIN TIMES: 08:00, 14:00, 22:00)
     Route: 048
     Dates: start: 20230122, end: 20230205
  8. COTRIMOXAZOLE [Concomitant]
     Active Substance: SULFAMETHOXAZOLE\TRIMETHOPRIM
     Indication: Ill-defined disorder
     Dosage: 1 DF ONCE A DAY (DOSAGE TEXT:1 TABLET ONCE A DAY)
     Route: 065
     Dates: start: 20230122, end: 20230205
  9. FLUCONAZOLE [Concomitant]
     Active Substance: FLUCONAZOLE
     Indication: Ill-defined disorder
     Dosage: 1 DF ONCE A DAY (DOSAGE TEXT: 1 CAPSULE - ADMIN TIMES: 08:00)
     Route: 048
     Dates: start: 20230122, end: 20230205
  10. MESALAMINE [Concomitant]
     Active Substance: MESALAMINE
     Indication: Ill-defined disorder
     Dosage: INSERT ONE AT NIGHT WHEN REQUIRED
     Route: 065
     Dates: start: 20200629
  11. FILGRASTIM [Concomitant]
     Active Substance: FILGRASTIM
     Indication: Ill-defined disorder
     Dosage: 350 MICROGRAM
     Route: 065
     Dates: start: 20230121, end: 20230121
  12. MESALAMINE [Concomitant]
     Active Substance: MESALAMINE
     Indication: Ill-defined disorder
     Dosage: 2 DF ONCE A DAY, DOSAGE TEXT: TAKE TWO TABLETS IN THE MORNING - (TOTAL DOSE 1
     Route: 065
     Dates: start: 20220225
  13. ACETAMINOPHEN [Concomitant]
     Active Substance: ACETAMINOPHEN
     Indication: Ill-defined disorder
     Dosage: 2 DF, AS NECESSARY (DOSAGE TEXT: 2 TABLET - AS REQUIRED. TAKE: NO MORE THAN 8 TABLET IN 24 HOURS. MI
     Route: 065
     Dates: start: 20230122, end: 20230205

REACTIONS (5)
  - Tendonitis [Recovering/Resolving]
  - Tendonitis [Recovering/Resolving]
  - Neuropathy peripheral [Recovering/Resolving]
  - Tendon pain [Recovering/Resolving]
  - Musculoskeletal stiffness [Unknown]

NARRATIVE: CASE EVENT DATE: 20230206
